FAERS Safety Report 9904282 (Version 3)
Quarter: 2016Q1

REPORT INFORMATION
  Report Type: Spontaneous
  Country: US (occurrence: US)
  Receive Date: 20140218
  Receipt Date: 20160318
  Transmission Date: 20160526
  Serious: Yes (Other)
  Sender: FDA-Public Use
  Company Number: US-BAYER-2014-021913

PATIENT
  Age: 46 Year
  Sex: Male

DRUGS (6)
  1. LISINOPRIL. [Concomitant]
     Active Substance: LISINOPRIL
  2. BETASERON [Suspect]
     Active Substance: INTERFERON BETA-1B
     Indication: RELAPSING-REMITTING MULTIPLE SCLEROSIS
     Dosage: 0.25 MG, QOD
     Route: 058
     Dates: start: 19990215, end: 20150301
  3. AMBIEN [Concomitant]
     Active Substance: ZOLPIDEM TARTRATE
  4. BETASERON [Suspect]
     Active Substance: INTERFERON BETA-1B
     Indication: RELAPSING-REMITTING MULTIPLE SCLEROSIS
     Dosage: 25 MG EVERY OTHER DAY
     Route: 058
     Dates: start: 201603
  5. XANAX [Concomitant]
     Active Substance: ALPRAZOLAM
  6. PLAQUENIL [Concomitant]
     Active Substance: HYDROXYCHLOROQUINE SULFATE

REACTIONS (8)
  - Shoulder operation [None]
  - Hip arthroplasty [None]
  - Injection site abscess [Recovered/Resolved]
  - Skin infection [None]
  - Influenza like illness [None]
  - Injection site erythema [Not Recovered/Not Resolved]
  - Pharyngeal cyst [None]
  - Injection site reaction [Recovered/Resolved]

NARRATIVE: CASE EVENT DATE: 199902
